FAERS Safety Report 15575335 (Version 2)
Quarter: 2018Q4

REPORT INFORMATION
  Report Type: Spontaneous
  Country: US (occurrence: US)
  Receive Date: 20181101
  Receipt Date: 20181122
  Transmission Date: 20190205
  Serious: No
  Sender: FDA-Public Use
  Company Number: US-ASTRAZENECA-2018SF30326

PATIENT
  Age: 52 Year
  Sex: Male
  Weight: 90.7 kg

DRUGS (4)
  1. FLONASE [Concomitant]
     Active Substance: FLUTICASONE PROPIONATE
     Route: 045
  2. BUDESONIDE. [Suspect]
     Active Substance: BUDESONIDE
     Indication: SINUS POLYP
     Dosage: 0.5 MG/2 ML TO DILUTE WITH WATER AND USE AS NASAL RINSE
     Route: 045
  3. PULMICORT FLEXHALER [Suspect]
     Active Substance: BUDESONIDE
     Indication: ASTHMA
     Dosage: 180 MCG 1 PUFF TWICE A DAY
     Route: 055
     Dates: start: 2018
  4. BUDESONIDE. [Suspect]
     Active Substance: BUDESONIDE
     Indication: SINUS POLYP
     Route: 045

REACTIONS (7)
  - Device malfunction [Unknown]
  - Product substitution issue [Unknown]
  - Wheezing [Unknown]
  - Visual impairment [Unknown]
  - Intentional dose omission [Unknown]
  - Asthma [Unknown]
  - Intentional product misuse [Unknown]

NARRATIVE: CASE EVENT DATE: 2018
